FAERS Safety Report 14207136 (Version 2)
Quarter: 2018Q1

REPORT INFORMATION
  Report Type: Report from Study
  Country: DE (occurrence: DE)
  Receive Date: 20171121
  Receipt Date: 20180219
  Transmission Date: 20180508
  Serious: Yes (Hospitalization, Other)
  Sender: FDA-Public Use
  Company Number: DE-ROCHE-2008424

PATIENT
  Age: 73 Year
  Sex: Female
  Weight: 72 kg

DRUGS (2)
  1. BEVACIZUMAB. [Suspect]
     Active Substance: BEVACIZUMAB
     Indication: RENAL CELL CARCINOMA
     Route: 042
     Dates: start: 20110217, end: 20120125
  2. INTERFERON ALFA-2A [Suspect]
     Active Substance: INTERFERON ALFA-2A
     Indication: RENAL CELL CARCINOMA
     Route: 065
     Dates: start: 20110223, end: 20110420

REACTIONS (10)
  - Proteinuria [Unknown]
  - Visual impairment [Unknown]
  - Nail disorder [Unknown]
  - Pain in extremity [Unknown]
  - Pain [Unknown]
  - Dyspepsia [Unknown]
  - Fatigue [Unknown]
  - Dyspnoea [Unknown]
  - Pain [Unknown]
  - Sciatica [Recovered/Resolved]

NARRATIVE: CASE EVENT DATE: 20120125
